FAERS Safety Report 16398370 (Version 1)
Quarter: 2019Q2

REPORT INFORMATION
  Report Type: Spontaneous
  Country: US (occurrence: US)
  Receive Date: 20190606
  Receipt Date: 20190606
  Transmission Date: 20190711
  Serious: No
  Sender: FDA-Public Use
  Company Number: US-BAUSCH-BL-2019-015319

PATIENT
  Age: 66 Year
  Sex: Female

DRUGS (2)
  1. ATIVAN [Suspect]
     Active Substance: LORAZEPAM
     Indication: PRODUCT USE IN UNAPPROVED INDICATION
  2. ATIVAN [Suspect]
     Active Substance: LORAZEPAM
     Indication: VERTIGO
     Dosage: AS DIRECTED
     Route: 048

REACTIONS (3)
  - Vertigo [Not Recovered/Not Resolved]
  - Product use in unapproved indication [Unknown]
  - Product quality issue [Unknown]
